FAERS Safety Report 9358073 (Version 4)
Quarter: 2013Q4

REPORT INFORMATION
  Report Type: Spontaneous
  Country: US (occurrence: US)
  Receive Date: 20130620
  Receipt Date: 20131216
  Transmission Date: 20140711
  Serious: No
  Sender: FDA-Public Use
  Company Number: US-PFIZER INC-2013182033

PATIENT
  Age: 70 Year
  Sex: Female

DRUGS (5)
  1. SUTENT [Suspect]
     Indication: MALIGNANT NEOPLASM OF ISLETS OF LANGERHANS
     Dosage: 37.5 MG, (25 MG AND 12.5 MG) 1X/DAY
     Route: 048
     Dates: start: 20130114
  2. METFORMIN [Concomitant]
     Dosage: UNK
  3. GLYBURIDE [Concomitant]
     Dosage: UNK
  4. VITAMIN C [Concomitant]
     Dosage: UNK
  5. FERROUS SULPHATE [Concomitant]
     Dosage: UNK

REACTIONS (3)
  - Diarrhoea [Not Recovered/Not Resolved]
  - Pain in extremity [Unknown]
  - Burning sensation [Unknown]
